FAERS Safety Report 13806599 (Version 1)
Quarter: 2017Q3

REPORT INFORMATION
  Report Type: Spontaneous
  Country: US (occurrence: US)
  Receive Date: 20170728
  Receipt Date: 20170728
  Transmission Date: 20171127
  Serious: No
  Sender: FDA-Public Use
  Company Number: US-BAYER-2017-144494

PATIENT
  Age: 84 Year
  Sex: Male
  Weight: 125 kg

DRUGS (1)
  1. MIRALAX [Suspect]
     Active Substance: POLYETHYLENE GLYCOL 3350
     Indication: GASTROINTESTINAL DISORDER
     Dosage: 17 G, QD
     Route: 048

REACTIONS (3)
  - Incorrect drug administration duration [Unknown]
  - Haemorrhoids [Unknown]
  - Drug prescribing error [None]

NARRATIVE: CASE EVENT DATE: 2017
